FAERS Safety Report 19823724 (Version 1)
Quarter: 2021Q3

REPORT INFORMATION
  Report Type: Report from Study
  Country: US (occurrence: US)
  Receive Date: 20210913
  Receipt Date: 20210913
  Transmission Date: 20211014
  Serious: Yes (Death)
  Sender: FDA-Public Use
  Company Number: US-CLOVIS ONCOLOGY-CLO-2021-001373

PATIENT
  Sex: Male

DRUGS (1)
  1. RUBRACA [Suspect]
     Active Substance: RUCAPARIB CAMSYLATE
     Indication: PLEURAL MESOTHELIOMA
     Dosage: UNKNOWN DOSE
     Route: 048
     Dates: start: 20210814

REACTIONS (2)
  - Product use in unapproved indication [Unknown]
  - Pneumonitis [Fatal]
